FAERS Safety Report 13121474 (Version 21)
Quarter: 2019Q2

REPORT INFORMATION
  Report Type: Spontaneous
  Country: BR (occurrence: BR)
  Receive Date: 20170117
  Receipt Date: 20190606
  Transmission Date: 20190711
  Serious: Yes (Hospitalization, Other)
  Sender: FDA-Public Use
  Company Number: BR-GLAXOSMITHKLINE-BR2017GSK004949

PATIENT
  Age: 50 Year
  Sex: Female
  Weight: 58 kg

DRUGS (13)
  1. METHOTREXATE. [Suspect]
     Active Substance: METHOTREXATE
     Indication: PRODUCT USED FOR UNKNOWN INDICATION
     Dosage: UNK
  2. PANTOPRAZOLE [Concomitant]
     Active Substance: PANTOPRAZOLE
     Indication: PRODUCT USED FOR UNKNOWN INDICATION
     Dosage: UNK
  3. MANIDIPINE [Concomitant]
     Active Substance: MANIDIPINE
     Indication: PRODUCT USED FOR UNKNOWN INDICATION
     Dosage: UNK
  4. REUQUINOL [Concomitant]
     Active Substance: HYDROXYCHLOROQUINE SULFATE
     Indication: PRODUCT USED FOR UNKNOWN INDICATION
     Dosage: UNK
  5. METOPROLOL. [Concomitant]
     Active Substance: METOPROLOL
     Indication: PRODUCT USED FOR UNKNOWN INDICATION
     Dosage: UNK
  6. BENLYSTA [Suspect]
     Active Substance: BELIMUMAB
     Indication: SYSTEMIC LUPUS ERYTHEMATOSUS
     Dosage: UNK
     Dates: start: 20161129
  7. SOLU-MEDROL [Suspect]
     Active Substance: METHYLPREDNISOLONE SODIUM SUCCINATE
     Indication: PRODUCT USED FOR UNKNOWN INDICATION
     Dosage: UNK
  8. CORTISONE ACETATE. [Suspect]
     Active Substance: CORTISONE ACETATE
     Indication: PRODUCT USED FOR UNKNOWN INDICATION
     Dosage: UNK
  9. SILDENAFIL. [Concomitant]
     Active Substance: SILDENAFIL
     Indication: PRODUCT USED FOR UNKNOWN INDICATION
     Dosage: UNK
  10. BENADRYL [Concomitant]
     Active Substance: DIPHENHYDRAMINE HYDROCHLORIDE
     Indication: PRODUCT USED FOR UNKNOWN INDICATION
     Dosage: UNK
  11. SIMVASTATIN. [Concomitant]
     Active Substance: SIMVASTATIN
     Indication: PRODUCT USED FOR UNKNOWN INDICATION
     Dosage: UNK
  12. PREDNISONE. [Concomitant]
     Active Substance: PREDNISONE
     Indication: PRODUCT USED FOR UNKNOWN INDICATION
     Dosage: UNK
  13. PREGABALIN. [Concomitant]
     Active Substance: PREGABALIN
     Indication: PRODUCT USED FOR UNKNOWN INDICATION
     Dosage: UNK

REACTIONS (36)
  - Cataract [Unknown]
  - Spinal fracture [Unknown]
  - Hypersensitivity [Unknown]
  - Feeding disorder [Unknown]
  - Systemic lupus erythematosus [Unknown]
  - Pain in extremity [Unknown]
  - Pyrexia [Unknown]
  - Ill-defined disorder [Unknown]
  - Underdose [Unknown]
  - Product dose omission [Unknown]
  - Necrosis [Unknown]
  - Dysphonia [Unknown]
  - Loss of personal independence in daily activities [Unknown]
  - Speech disorder [Unknown]
  - Inappropriate schedule of product administration [Recovered/Resolved]
  - Circumstance or information capable of leading to medication error [Unknown]
  - Joint effusion [Unknown]
  - Weight increased [Unknown]
  - Vision blurred [Unknown]
  - Muscular weakness [Unknown]
  - White blood cell count decreased [Unknown]
  - Vasculitis [Unknown]
  - Myocardial infarction [Recovered/Resolved]
  - Hospitalisation [Unknown]
  - Sepsis [Recovered/Resolved]
  - Urinary tract infection [Unknown]
  - Arthralgia [Unknown]
  - Weight decreased [Unknown]
  - Skin discolouration [Unknown]
  - Pain [Unknown]
  - Therapeutic product effect decreased [Unknown]
  - Product availability issue [Unknown]
  - Back pain [Unknown]
  - Swelling [Unknown]
  - Infection [Unknown]
  - H1N1 influenza [Unknown]

NARRATIVE: CASE EVENT DATE: 201705
